FAERS Safety Report 5787096-X (Version None)
Quarter: 2008Q2

REPORT INFORMATION
  Report Type: 
  Country: None (occurrence: None)
  Receive Date: 20080618
  Receipt Date: 20080609
  Transmission Date: 20081010
  Serious: Yes (Other)
  Sender: FDA-Public Use
  Company Number: 235503J08USA

PATIENT
  Age: 55 Year
  Sex: Female

DRUGS (1)
  1. REBIF [Suspect]
     Indication: MULTIPLE SCLEROSIS
     Dosage: 22 MCG, 1 IN 4 DAYS, SUBCUTANEOUS
     Route: 058
     Dates: start: 20041007

REACTIONS (7)
  - INJECTION SITE PAIN [None]
  - PAIN IN EXTREMITY [None]
  - PLATELET COUNT DECREASED [None]
  - RED BLOOD CELL COUNT DECREASED [None]
  - THYROID FUNCTION TEST ABNORMAL [None]
  - UTERINE LEIOMYOMA [None]
  - UTERINE POLYP [None]
